FAERS Safety Report 4925090-9 (Version None)
Quarter: 2006Q1

REPORT INFORMATION
  Report Type: 
  Country: None (occurrence: None)
  Receive Date: 20060228
  Receipt Date: 20060124
  Transmission Date: 20060701
  Serious: Yes (Other)
  Sender: FDA-Public Use
  Company Number: JP-SP-2006-00238

PATIENT
  Age: 72 Year
  Sex: Male

DRUGS (4)
  1. IMMUCYST [Suspect]
     Indication: BLADDER CANCER
     Route: 043
     Dates: start: 20060105, end: 20060105
  2. IMMUCYST [Suspect]
     Route: 043
     Dates: start: 20060105, end: 20060105
  3. IMMUCYST [Suspect]
     Route: 043
     Dates: start: 20060105, end: 20060105
  4. PROPIVERINE HYDROCHLORIDE [Concomitant]
     Dates: start: 20060105, end: 20060111

REACTIONS (7)
  - ABDOMINAL PAIN [None]
  - ARTHRALGIA [None]
  - HEPATIC FUNCTION ABNORMAL [None]
  - INFLUENZA LIKE ILLNESS [None]
  - MYALGIA [None]
  - PLEURAL EFFUSION [None]
  - PYREXIA [None]
